FAERS Safety Report 6919800-9 (Version None)
Quarter: 2010Q3

REPORT INFORMATION
  Report Type: 
  Country: None (occurrence: None)
  Receive Date: 20100810
  Receipt Date: 20100810
  Transmission Date: 20110219
  Serious: Yes (Other)
  Sender: FDA-Public Use
  Company Number: None

PATIENT
  Age: 52 Year
  Sex: Female
  Weight: 104.3273 kg

DRUGS (1)
  1. LEVOTHYROXINE SODIUM [Suspect]
     Indication: THYROID DISORDER
     Dosage: 1 TAB DAILY PO
     Route: 048
     Dates: start: 20100508, end: 20100809

REACTIONS (2)
  - CARDIAC FLUTTER [None]
  - EXTRASYSTOLES [None]
